FAERS Safety Report 8111025-7 (Version None)
Quarter: 2012Q1

REPORT INFORMATION
  Report Type: 
  Country: None (occurrence: None)
  Receive Date: 20120203
  Receipt Date: 20110223
  Transmission Date: 20120608
  Serious: Yes (Hospitalization)
  Sender: FDA-Public Use
  Company Number: US-GLAXOSMITHKLINE-A0915067A

PATIENT
  Age: 36 Year
  Sex: Female

DRUGS (3)
  1. CHLORDIAZEPOXIDE [Concomitant]
  2. LAMICTAL [Suspect]
     Indication: CONVULSION
     Dosage: 200MG TWICE PER DAY
     Route: 048
     Dates: start: 20040201
  3. LISINOPRIL [Concomitant]

REACTIONS (1)
  - CONVULSION [None]
